FAERS Safety Report 9001136 (Version 4)
Quarter: 2013Q2

REPORT INFORMATION
  Report Type: Report from Study
  Country: US (occurrence: US)
  Receive Date: 20130107
  Receipt Date: 20130417
  Transmission Date: 20140414
  Serious: Yes (Death, Hospitalization, Other)
  Sender: FDA-Public Use
  Company Number: US-GENZYME-CLOF-1002456

PATIENT
  Age: 56 Year
  Sex: Female
  Weight: 60.5 kg

DRUGS (57)
  1. CLOLAR [Suspect]
     Indication: ACUTE MYELOID LEUKAEMIA
     Dosage: 66 MG, QD X 5 DOSES, CONDITIONING REGIMEN
     Route: 042
     Dates: start: 20121017, end: 20121021
  2. CLOLAR [Suspect]
     Indication: BONE MARROW CONDITIONING REGIMEN
  3. BUSULFAN [Suspect]
     Indication: ACUTE MYELOID LEUKAEMIA
     Dosage: 182.4 MG, QD AND 290 MG CONDITIONING REGIMEN
     Route: 042
     Dates: start: 20121018, end: 20121021
  4. BUSULFAN [Suspect]
     Indication: BONE MARROW CONDITIONING REGIMEN
  5. TACROLIMUS [Concomitant]
     Indication: PROPHYLAXIS AGAINST GRAFT VERSUS HOST DISEASE
     Dosage: UNK
     Route: 065
  6. METHOTREXATE [Concomitant]
     Indication: PROPHYLAXIS AGAINST GRAFT VERSUS HOST DISEASE
     Dosage: UNK
     Route: 065
  7. ACYCLOVIR [Concomitant]
     Indication: PRODUCT USED FOR UNKNOWN INDICATION
     Dosage: 400 MG, BID
     Route: 048
     Dates: start: 20121113
  8. AMLODIPINE [Concomitant]
     Indication: HYPERTENSION
     Dosage: 10 MG, ONCE
     Route: 048
     Dates: start: 20121231, end: 20121231
  9. ATOVAQUONE [Concomitant]
     Indication: PRODUCT USED FOR UNKNOWN INDICATION
     Dosage: 5 ML, BID (750 MG/5 ML ORAL)
     Route: 048
     Dates: start: 20121113
  10. ATOVAQUONE [Concomitant]
     Dosage: 750 MG, QD
     Route: 065
  11. ATROPINE DIPHENOXYLATE [Concomitant]
     Indication: DIARRHOEA
     Dosage: UNK; 0.025-2.5MG; 1-2 TABS NOT TO EXCEED 8 TABS/24 HR PERIOD
     Route: 048
     Dates: start: 20121113
  12. BALANCED SALT SOLN [Concomitant]
     Indication: PRODUCT USED FOR UNKNOWN INDICATION
     Dosage: UNK; BEFORE INSTALLATION OF NEOSPORIN
     Route: 047
  13. BETHANECHOL [Concomitant]
     Indication: PRODUCT USED FOR UNKNOWN INDICATION
     Dosage: 25 MG, TIDX30 DYS
     Route: 048
     Dates: start: 20121207
  14. BIOTENE [Concomitant]
     Indication: PRODUCT USED FOR UNKNOWN INDICATION
     Dosage: 5 ML, QID (SWISH ORALLY)
     Route: 065
  15. CARBOXYMETHYLCELLULOSE SODIUM [Concomitant]
     Indication: PRODUCT USED FOR UNKNOWN INDICATION
     Dosage: 1 DROP TO EACH AFFECTED EYE EVERY 1-2 HRS, PRN
     Route: 065
  16. CELLCEPT [Concomitant]
     Indication: PRODUCT USED FOR UNKNOWN INDICATION
     Dosage: 500 MG, 2 TABS BID
     Route: 048
     Dates: start: 20121227
  17. CHLORHEXIDINE [Concomitant]
     Indication: PRODUCT USED FOR UNKNOWN INDICATION
     Dosage: 10 ML, UNK; 1-4 TIMES A DAYX30 DAYS
     Route: 061
     Dates: start: 20121207
  18. COLECALCIFEROL [Concomitant]
     Indication: PRODUCT USED FOR UNKNOWN INDICATION
     Dosage: 2000 IU, QD
     Route: 048
     Dates: start: 20121227
  19. ESTROGENS CONJUGATED [Concomitant]
     Indication: PRODUCT USED FOR UNKNOWN INDICATION
     Dosage: 9 MG, QD
     Route: 048
     Dates: start: 20121113
  20. DELICA LANCET [Concomitant]
     Indication: PRODUCT USED FOR UNKNOWN INDICATION
     Dosage: UNK
     Route: 065
     Dates: start: 20121114
  21. GLIPIZIDE [Concomitant]
     Indication: PRODUCT USED FOR UNKNOWN INDICATION
     Dosage: 2.5 MG, BID
     Route: 048
     Dates: start: 20121231
  22. HYDROXYZINE HYDROCHLORIDE [Concomitant]
     Indication: PRURITUS
     Dosage: 25 MG, BID
     Route: 048
     Dates: start: 20121112
  23. HYDROXYZINE HYDROCHLORIDE [Concomitant]
     Dosage: UNK; HELD DUE TO LOW BLOOD SUGAR
     Route: 065
     Dates: end: 20121231
  24. LACRI-LUBE [Concomitant]
     Indication: PRODUCT USED FOR UNKNOWN INDICATION
     Dosage: UNK MG, QID
     Route: 065
     Dates: start: 20121122
  25. LEVAQUIN [Concomitant]
     Indication: PRODUCT USED FOR UNKNOWN INDICATION
     Dosage: 1 DF, QD
     Route: 048
     Dates: start: 20121231
  26. LOPID [Concomitant]
     Indication: PRODUCT USED FOR UNKNOWN INDICATION
     Dosage: 1 DF, BID
     Route: 048
     Dates: start: 20121218
  27. LORAZEPAM [Concomitant]
     Indication: NAUSEA
     Dosage: 1 DF, EVERY 4 HR; PRN
     Route: 048
     Dates: start: 20121113
  28. LORAZEPAM [Concomitant]
     Indication: VOMITING
  29. LOVAZA ETHYL ESTERS [Concomitant]
     Indication: PRODUCT USED FOR UNKNOWN INDICATION
     Dosage: 1 DF, TID
     Route: 048
     Dates: start: 20121218
  30. MAGNESIUM AMINO ACIDS CHELATE [Concomitant]
     Indication: PRODUCT USED FOR UNKNOWN INDICATION
     Dosage: 2 DF, TID
     Route: 048
     Dates: start: 20121116
  31. METOCLOPRAMIDE [Concomitant]
     Indication: PRODUCT USED FOR UNKNOWN INDICATION
     Dosage: 1 DF, QID
     Route: 048
     Dates: start: 20121231
  32. MICAFUNGIN [Concomitant]
     Indication: PRODUCT USED FOR UNKNOWN INDICATION
     Dosage: 100 MG, QD
     Route: 042
     Dates: start: 20121210
  33. NYSTATIN [Concomitant]
     Indication: PRODUCT USED FOR UNKNOWN INDICATION
     Dosage: 5 ML, TID
     Route: 048
     Dates: start: 20121113
  34. ONDANSETRON [Concomitant]
     Indication: NAUSEA
     Dosage: 8 MG, QD
     Route: 048
     Dates: start: 20121113
  35. ONDANSETRON [Concomitant]
     Indication: VOMITING
  36. PRANDIN [Concomitant]
     Indication: PRODUCT USED FOR UNKNOWN INDICATION
     Dosage: 2 MG, TID
     Route: 065
  37. PANTOPRAZOLE [Concomitant]
     Indication: PRODUCT USED FOR UNKNOWN INDICATION
     Dosage: 40 MG, QD
     Route: 048
     Dates: start: 20121226
  38. POTASSIUM CHLORIDE [Concomitant]
     Indication: PRODUCT USED FOR UNKNOWN INDICATION
     Dosage: 1 DF, UNK
     Dates: start: 20121218
  39. PREDNISOLONE ACETATE [Concomitant]
     Indication: PRODUCT USED FOR UNKNOWN INDICATION
     Dosage: 1 DF(ONE DROP IN EACH EYE), Q4HR
     Route: 065
  40. PREDNISONE [Concomitant]
     Indication: PRODUCT USED FOR UNKNOWN INDICATION
     Dosage: 2 TABS ONCE IN MORNING AND ONE IN EVENING X30 DAYS
     Route: 048
     Dates: start: 20121221
  41. PREDNISONE [Concomitant]
     Dosage: UNK; DOSE DECREASED
     Route: 048
  42. PREDNISONE [Concomitant]
     Dosage: 60 MG, BID
     Route: 065
  43. PROCHLORPERAZINE [Concomitant]
     Indication: NAUSEA
     Dosage: 1 TAB EVERY 6 HRS; PRN
     Route: 048
     Dates: start: 20121113
  44. PROCHLORPERAZINE [Concomitant]
     Indication: VOMITING
     Dosage: 10 MG, UNK
     Route: 065
  45. SENNA [Concomitant]
     Indication: CONSTIPATION
     Dosage: 2 TABS ONCE A DAY (AT BED TIME); PRN
     Route: 048
     Dates: start: 20121204
  46. TACROLIMUS [Concomitant]
     Indication: PRODUCT USED FOR UNKNOWN INDICATION
     Dosage: 2 IN MORNING AND 2 IN EVENING
     Route: 048
     Dates: start: 20121228
  47. TACROLIMUS [Concomitant]
     Dosage: 2 MG, BID
     Route: 065
  48. TETRACAINE [Concomitant]
     Indication: PRODUCT USED FOR UNKNOWN INDICATION
     Dosage: 1 DF, (DROP TO EACH EYE) BID
     Route: 065
  49. TRAMADOL [Concomitant]
     Indication: PAIN
     Dosage: 1 DF (1 TAB EVERY 6 HRS), PRN
     Route: 048
     Dates: start: 20121113
  50. TRAMADOL [Concomitant]
     Dosage: 50 MG, EVERY SIX HOURS
     Route: 065
  51. TRIAMCINOLONE [Concomitant]
     Indication: PRODUCT USED FOR UNKNOWN INDICATION
     Dosage: 1 DF, TIDX30 DAYS
     Route: 061
     Dates: start: 20121214
  52. MEPRON [Concomitant]
     Indication: PRODUCT USED FOR UNKNOWN INDICATION
     Dosage: UNK
     Route: 065
  53. TYLENOL [Concomitant]
     Indication: PAIN
     Dosage: 2 DF, EVERY 6 HRS; PRN
     Route: 048
  54. TYLENOL [Concomitant]
     Indication: PYREXIA
  55. URSODIOL [Concomitant]
     Indication: PRODUCT USED FOR UNKNOWN INDICATION
     Dosage: 300 MG, BID
     Route: 048
     Dates: start: 20121205
  56. VERIO STRIP [Concomitant]
     Indication: PRODUCT USED FOR UNKNOWN INDICATION
     Dosage: UNK; TID
     Route: 065
     Dates: start: 20121114
  57. ZOLPIDEM [Concomitant]
     Indication: INSOMNIA
     Dosage: 1 DF, QD
     Route: 048
     Dates: start: 20121113

REACTIONS (7)
  - Graft versus host disease [Fatal]
  - Pneumonia [Fatal]
  - Graft versus host disease [Fatal]
  - Graft versus host disease in skin [Recovered/Resolved]
  - Septic shock [Fatal]
  - Thrombocytopenia [Fatal]
  - Blood lactate dehydrogenase increased [Fatal]
